FAERS Safety Report 8173238-8 (Version None)
Quarter: 2012Q1

REPORT INFORMATION
  Report Type: 
  Country: None (occurrence: None)
  Receive Date: 20120229
  Receipt Date: 20111118
  Transmission Date: 20120608
  Serious: No
  Sender: FDA-Public Use
  Company Number: US-GLAXOSMITHKLINE-A0954756A

PATIENT
  Age: 70 Year
  Sex: Female
  Weight: 125 kg

DRUGS (16)
  1. NADOLOL [Concomitant]
     Indication: MIGRAINE
     Dosage: 40MGD PER DAY
  2. TRIAMTERENE AND HYDROCHLOROTHIAZIDE [Concomitant]
     Indication: OEDEMA
  3. SUMATRIPTAN [Suspect]
     Dosage: 20MG AS REQUIRED
     Route: 045
  4. ZOLOFT [Concomitant]
     Indication: MIGRAINE
     Dosage: 25MGD PER DAY
  5. OXYCODONE HCL [Concomitant]
     Indication: BREAKTHROUGH PAIN
  6. PROVIGIL [Concomitant]
     Indication: FATIGUE
     Dosage: 200MGD PER DAY
  7. FLONASE [Concomitant]
     Indication: HYPERSENSITIVITY
     Route: 045
  8. GSK AUTOINJECTOR [Suspect]
     Indication: MIGRAINE
     Route: 058
  9. LEVEMIR [Concomitant]
     Indication: DIABETES MELLITUS
  10. NAPROXEN [Concomitant]
     Indication: BURSITIS
  11. CYCLOBENZAPRINE [Concomitant]
     Indication: MUSCLE SPASMS
  12. SUMATRIPTAN [Suspect]
     Indication: MIGRAINE
     Route: 058
  13. COZAAR [Concomitant]
     Indication: MIGRAINE
     Dosage: 50MGD PER DAY
  14. AMBIEN [Concomitant]
     Indication: INSOMNIA
     Dosage: 10MG AT NIGHT
  15. NOVOLOG [Concomitant]
     Indication: DIABETES MELLITUS
  16. OXYCODONE HCL [Concomitant]
     Indication: BACK PAIN
     Dosage: 20MG TWICE PER DAY

REACTIONS (5)
  - EAR PRURITUS [None]
  - THROAT IRRITATION [None]
  - INJECTION SITE REACTION [None]
  - INJECTION SITE PAIN [None]
  - HYPERSENSITIVITY [None]
